FAERS Safety Report 4394482-1 (Version None)
Quarter: 2004Q3

REPORT INFORMATION
  Report Type: 
  Country: None (occurrence: None)
  Receive Date: 20040709
  Receipt Date: 20040709
  Transmission Date: 20050211
  Serious: Yes (Disabling, Other)
  Sender: FDA-Public Use
  Company Number: None

PATIENT
  Age: 48 Year
  Sex: Female
  Weight: 65.7716 kg

DRUGS (1)
  1. CLONAZEPAM [Suspect]
     Indication: INSOMNIA
     Dosage: 0.1 MG NIGHTLY ORAL
     Route: 048
     Dates: start: 19980601, end: 20040708

REACTIONS (6)
  - DRUG DEPENDENCE [None]
  - DRUG INEFFECTIVE [None]
  - DRUG WITHDRAWAL SYNDROME [None]
  - DYSGEUSIA [None]
  - FEELING ABNORMAL [None]
  - PAIN [None]
